FAERS Safety Report 21490580 (Version 2)
Quarter: 2022Q4

REPORT INFORMATION
  Report Type: Spontaneous
  Country: AT (occurrence: AT)
  Receive Date: 20221021
  Receipt Date: 20221202
  Transmission Date: 20230113
  Serious: Yes (Death, Hospitalization)
  Sender: FDA-Public Use
  Company Number: AT-NOVOPROD-968949

PATIENT
  Age: 70 Year
  Sex: Male
  Weight: 85 kg

DRUGS (2)
  1. OZEMPIC [Suspect]
     Active Substance: SEMAGLUTIDE
     Indication: Type 2 diabetes mellitus
     Dosage: UNK
     Dates: start: 202204, end: 20221010
  2. JANUMET [Concomitant]
     Active Substance: METFORMIN HYDROCHLORIDE\SITAGLIPTIN PHOSPHATE
     Indication: Urogenital disorder
     Dosage: UNK

REACTIONS (8)
  - Cerebrovascular accident [Fatal]
  - Pancreatic carcinoma [Unknown]
  - Depression [Unknown]
  - Disturbance in attention [Unknown]
  - Chronic fatigue syndrome [Unknown]
  - Hypoglycaemia [Unknown]
  - Taste disorder [Unknown]
  - Blood glucose increased [Unknown]

NARRATIVE: CASE EVENT DATE: 20220901
